FAERS Safety Report 7219849-5 (Version None)
Quarter: 2011Q1

REPORT INFORMATION
  Report Type: 
  Country: None (occurrence: None)
  Receive Date: 20110111
  Receipt Date: 20110106
  Transmission Date: 20110831
  Serious: Yes (Other)
  Sender: FDA-Public Use
  Company Number: JP-ROCHE-751991

PATIENT
  Sex: Male
  Weight: 51 kg

DRUGS (15)
  1. ACTEMRA [Suspect]
     Indication: RHEUMATOID ARTHRITIS
     Route: 041
     Dates: start: 20090914, end: 20090914
  2. ACTEMRA [Suspect]
     Route: 041
     Dates: start: 20091207, end: 20091207
  3. ACTEMRA [Suspect]
     Route: 041
     Dates: start: 20100301
  4. PREDNISOLONE [Concomitant]
     Route: 048
     Dates: start: 20100301, end: 20100317
  5. ACTEMRA [Suspect]
     Route: 041
     Dates: start: 20091013, end: 20091013
  6. LOXONIN [Concomitant]
     Route: 048
     Dates: start: 20060421
  7. RHEUMATREX [Concomitant]
     Route: 048
     Dates: start: 20070720
  8. PREDNISOLONE [Concomitant]
     Route: 048
     Dates: start: 20071214, end: 20091108
  9. PREDNISOLONE [Concomitant]
     Route: 048
     Dates: start: 20100201, end: 20100228
  10. PREDNISOLONE [Concomitant]
     Route: 048
     Dates: start: 20091109, end: 20091206
  11. PREDNISOLONE [Concomitant]
     Route: 048
     Dates: start: 20091207, end: 20100131
  12. ACTEMRA [Suspect]
     Route: 041
     Dates: start: 20100104, end: 20100104
  13. ACTEMRA [Suspect]
     Route: 041
     Dates: start: 20091109, end: 20091109
  14. ACTEMRA [Suspect]
     Route: 041
     Dates: start: 20100201, end: 20100201
  15. FOLIAMIN [Concomitant]
     Route: 048
     Dates: start: 20080229

REACTIONS (1)
  - ARTHRITIS [None]
